FAERS Safety Report 8254438-5 (Version None)
Quarter: 2012Q2

REPORT INFORMATION
  Report Type: 
  Country: None (occurrence: None)
  Receive Date: 20120403
  Receipt Date: 20120321
  Transmission Date: 20120825
  Serious: Yes (Hospitalization)
  Sender: FDA-Public Use
  Company Number: NO-AMGEN-NORSP2012013855

PATIENT
  Age: 15 Year
  Sex: Female

DRUGS (3)
  1. IBUPROFEN [Concomitant]
     Dosage: 600 MG WHEN NEEDED
  2. IBUPROFEN [Concomitant]
     Indication: JUVENILE ARTHRITIS
     Dosage: 600 MG, PRN
     Route: 048
  3. ENBREL [Suspect]
     Indication: JUVENILE ARTHRITIS
     Dosage: 50 MG, QWK
     Route: 058
     Dates: start: 20071101, end: 20120201

REACTIONS (6)
  - PHOTOPHOBIA [None]
  - TUNNEL VISION [None]
  - VISUAL ACUITY REDUCED [None]
  - HEADACHE [None]
  - DIPLOPIA [None]
  - DRUG EFFECT DECREASED [None]
